FAERS Safety Report 15095729 (Version 2)
Quarter: 2018Q3

REPORT INFORMATION
  Report Type: Report from Study
  Country: None (occurrence: FI)
  Receive Date: 20180702
  Receipt Date: 20180706
  Transmission Date: 20181010
  Serious: Yes (Hospitalization, Other)
  Sender: FDA-Public Use
  Company Number: FI-ABBVIE-18K-055-2402326-00

PATIENT
  Age: 76 Year
  Sex: Female

DRUGS (1)
  1. DUODOPA [Suspect]
     Active Substance: CARBIDOPA\LEVODOPA
     Indication: PARKINSON^S DISEASE
     Dosage: MD 6 ML; DAY 5.1 ML; NIGHT 3.9 ML; ED 1 ML. 24H TREATMENT.
     Route: 050
     Dates: start: 2011

REACTIONS (14)
  - Parkinson^s disease [Not Recovered/Not Resolved]
  - Device leakage [Not Recovered/Not Resolved]
  - Incorrect route of drug administration [Unknown]
  - Fluid intake reduced [Unknown]
  - Incorrect drug administration duration [Unknown]
  - Drug dose omission [Recovered/Resolved]
  - Incorrect drug administration duration [Recovered/Resolved]
  - Device breakage [Unknown]
  - Medical device discomfort [Unknown]
  - Device occlusion [Not Recovered/Not Resolved]
  - Unresponsive to stimuli [Recovered/Resolved]
  - Pulmonary oedema [Recovered/Resolved]
  - Wrong technique in device usage process [Recovered/Resolved]
  - Intentional product misuse [Unknown]

NARRATIVE: CASE EVENT DATE: 2018
